FAERS Safety Report 5743477-1 (Version None)
Quarter: 2008Q2

REPORT INFORMATION
  Report Type: 
  Country: None (occurrence: None)
  Receive Date: 20080519
  Receipt Date: 20080519
  Transmission Date: 20081010
  Serious: Yes (Life-Threatening, Other)
  Sender: FDA-Public Use
  Company Number: None

PATIENT
  Age: 71 Year
  Sex: Female
  Weight: 62.1428 kg

DRUGS (3)
  1. DIGOXIN [Suspect]
     Indication: ATRIAL FIBRILLATION
     Dosage: 1 PILL DAILY
     Dates: start: 20080125, end: 20080516
  2. DIGOXIN [Suspect]
     Indication: CEREBROVASCULAR ACCIDENT
     Dosage: 1 PILL DAILY
     Dates: start: 20080125, end: 20080516
  3. DIGOXIN [Suspect]
     Indication: HEART RATE INCREASED
     Dosage: 1 PILL DAILY
     Dates: start: 20080125, end: 20080516

REACTIONS (8)
  - DRUG TOXICITY [None]
  - FEELING ABNORMAL [None]
  - GAIT DISTURBANCE [None]
  - ILL-DEFINED DISORDER [None]
  - MENTAL DISORDER [None]
  - PAIN [None]
  - PHARMACEUTICAL PRODUCT COMPLAINT [None]
  - SENSATION OF BLOOD FLOW [None]
